FAERS Safety Report 8852357 (Version 1)
Quarter: 2012Q4

REPORT INFORMATION
  Report Type: 
  Country: US (occurrence: US)
  Receive Date: 20121022
  Receipt Date: 20121022
  Transmission Date: 20130627
  Serious: Yes (Hospitalization)
  Sender: FDA-Public Use
  Company Number: US-ASTRAZENECA-2012SE78197

PATIENT
  Sex: Female

DRUGS (4)
  1. BRILINTA [Suspect]
     Route: 048
  2. COUMADIN [Suspect]
  3. SIMVASTATIN [Concomitant]
  4. PLAVIX [Concomitant]

REACTIONS (3)
  - Atrial fibrillation [Unknown]
  - Acute myocardial infarction [Unknown]
  - Rhabdomyolysis [Unknown]
